FAERS Safety Report 11645516 (Version 1)
Quarter: 2015Q4

REPORT INFORMATION
  Report Type: Report from Study
  Country: US (occurrence: US)
  Receive Date: 20151020
  Receipt Date: 20151020
  Transmission Date: 20160304
  Serious: Yes (Other)
  Sender: FDA-Public Use
  Company Number: US-BAYER-2015-417645

PATIENT
  Age: 54 Year
  Sex: Male

DRUGS (3)
  1. LAC-HYDRIN [AMMONIUM LACTATE] [Concomitant]
  2. STIVARGA [Suspect]
     Active Substance: REGORAFENIB
     Indication: COLON CANCER
     Dosage: 160 MG, QD WITH LOW FAT BREAKFAST FOR 21 DAYS
     Route: 048
  3. CLOBETASOL [Concomitant]
     Active Substance: CLOBETASOL

REACTIONS (7)
  - Nausea [None]
  - Abasia [None]
  - Pain [None]
  - Palmar-plantar erythrodysaesthesia syndrome [None]
  - Insomnia [None]
  - Depression [None]
  - Fatigue [None]
